FAERS Safety Report 7506854-4 (Version None)
Quarter: 2011Q2

REPORT INFORMATION
  Report Type: 
  Country: None (occurrence: None)
  Receive Date: 20110526
  Receipt Date: 20110519
  Transmission Date: 20111010
  Serious: Yes (Life-Threatening, Hospitalization)
  Sender: FDA-Public Use
  Company Number: B0720864A

PATIENT
  Sex: Female

DRUGS (6)
  1. TYRAMINE [Suspect]
     Route: 065
  2. PAROXETINE HCL [Suspect]
     Route: 065
  3. LITHIUM CARBONATE [Concomitant]
  4. PSYCHOTROPIC DRUGS [Suspect]
     Route: 065
  5. ENDEP [Concomitant]
  6. TRANYLCYPROMINE SULFATE [Concomitant]

REACTIONS (3)
  - SEROTONIN SYNDROME [None]
  - DRUG INTERACTION [None]
  - CONDITION AGGRAVATED [None]
